FAERS Safety Report 7927477-9 (Version None)
Quarter: 2011Q4

REPORT INFORMATION
  Report Type: 
  Country: None (occurrence: None)
  Receive Date: 20111118
  Receipt Date: 20111109
  Transmission Date: 20120403
  Serious: Yes (Congenital Anomaly)
  Sender: FDA-Public Use
  Company Number: US-GILEAD-2011-0041456

PATIENT
  Sex: Male

DRUGS (1)
  1. TENOFOVIR DISOPROXIL FUMARATE [Suspect]
     Dosage: UNK
     Route: 064
     Dates: start: 20091124, end: 20100831

REACTIONS (3)
  - TOOTH DEVELOPMENT DISORDER [None]
  - POLYDACTYLY [None]
  - ANKYLOGLOSSIA CONGENITAL [None]
